FAERS Safety Report 7448652-6 (Version None)
Quarter: 2011Q2

REPORT INFORMATION
  Report Type: 
  Country: None (occurrence: None)
  Receive Date: 20110429
  Receipt Date: 20100824
  Transmission Date: 20111010
  Serious: No
  Sender: FDA-Public Use
  Company Number: US-ASTRAZENECA-2010SE30608

PATIENT
  Age: 14589 Day
  Sex: Female
  Weight: 116.1 kg

DRUGS (5)
  1. NEXIUM [Suspect]
     Route: 048
  2. NEXIUM [Suspect]
     Route: 048
  3. NEXIUM [Suspect]
     Indication: GASTROOESOPHAGEAL REFLUX DISEASE
     Route: 048
     Dates: start: 20100429
  4. NEXIUM [Suspect]
     Indication: PEPTIC ULCER
     Route: 048
     Dates: start: 20100429
  5. ASPIRIN [Concomitant]
     Indication: THROMBOPHLEBITIS

REACTIONS (5)
  - DRUG INEFFECTIVE [None]
  - ULCER [None]
  - MIDDLE INSOMNIA [None]
  - ABDOMINAL PAIN UPPER [None]
  - DUODENAL ULCER [None]
